FAERS Safety Report 8414555-3 (Version None)
Quarter: 2012Q2

REPORT INFORMATION
  Report Type: 
  Country: None (occurrence: None)
  Receive Date: 20120605
  Receipt Date: 20120524
  Transmission Date: 20120825
  Serious: Yes (Other)
  Sender: FDA-Public Use
  Company Number: US-BAXTER-2012BAX006739

PATIENT
  Sex: Female
  Weight: 48 kg

DRUGS (2)
  1. DIANEAL [Suspect]
     Route: 033
     Dates: start: 20110418
  2. DIANEAL [Suspect]
     Indication: PERITONEAL DIALYSIS
     Route: 033
     Dates: start: 20110418

REACTIONS (2)
  - DIVERTICULITIS [None]
  - PERITONITIS BACTERIAL [None]
